FAERS Safety Report 22618019 (Version 1)
Quarter: 2023Q2

REPORT INFORMATION
  Report Type: Spontaneous
  Country: IT (occurrence: IT)
  Receive Date: 20230620
  Receipt Date: 20230620
  Transmission Date: 20230721
  Serious: Yes (Other)
  Sender: FDA-Public Use
  Company Number: IT-ELI_LILLY_AND_COMPANY-IT202305015779

PATIENT
  Age: 69 Year

DRUGS (10)
  1. PEMETREXED [Suspect]
     Active Substance: PEMETREXED
     Indication: Pleural mesothelioma malignant
     Dosage: 800 MILLIGRAM OTHER (EVERY 21 DAYS)
     Route: 065
     Dates: start: 2021
  2. AZITHROMYCIN [Concomitant]
     Active Substance: AZITHROMYCIN
     Indication: Product used for unknown indication
     Dosage: 500 MILLIGRAM, ONCE A DAY(500 MG, DAILY)
     Route: 065
  3. CARBOPLATIN [Concomitant]
     Active Substance: CARBOPLATIN
     Indication: Pleural mesothelioma malignant
     Dosage: UNK
     Route: 065
  4. PREDNISONE [Concomitant]
     Active Substance: PREDNISONE
     Indication: Product used for unknown indication
     Dosage: 12.5 MILLIGRAM, ONCE A DAY (12.5 MG, DAILY)
     Route: 065
  5. PREDNISONE [Concomitant]
     Active Substance: PREDNISONE
     Dosage: 25 MILLIGRAM, ONCE A DAY (25 MG, DAILY)
     Route: 065
  6. PREDNISONE [Concomitant]
     Active Substance: PREDNISONE
     Dosage: 12.5 MILLIGRAM, ONCE A DAY (12.5 MG, DAILY)
     Route: 065
  7. PREDNISONE [Concomitant]
     Active Substance: PREDNISONE
     Dosage: 5 MILLIGRAM, ONCE A DAY (5 MG, DAILY)
     Route: 065
  8. CEFDITOREN PIVOXIL [Concomitant]
     Active Substance: CEFDITOREN PIVOXIL
     Indication: Product used for unknown indication
     Dosage: 800 MILLIGRAM, ONCE A DAY(400 MG, BID)
     Route: 065
  9. IPILIMUMAB [Concomitant]
     Active Substance: IPILIMUMAB
     Indication: Pleural mesothelioma malignant
     Dosage: UNK
     Route: 065
  10. NIVOLUMAB [Concomitant]
     Active Substance: NIVOLUMAB
     Indication: Pleural mesothelioma malignant
     Dosage: UNK
     Route: 065
     Dates: start: 20211007

REACTIONS (4)
  - Malignant neoplasm progression [Unknown]
  - Lung opacity [Unknown]
  - Cough [Unknown]
  - Pleural effusion [Unknown]

NARRATIVE: CASE EVENT DATE: 20211022
